FAERS Safety Report 24059954 (Version 1)
Quarter: 2024Q3

REPORT INFORMATION
  Report Type: Spontaneous
  Country: US (occurrence: None)
  Receive Date: 20240705
  Receipt Date: 20240705
  Transmission Date: 20241017
  Serious: Yes (Hospitalization)
  Sender: Public
  Company Number: None

PATIENT
  Sex: Male

DRUGS (1)
  1. CAPECITABINE [Suspect]
     Active Substance: CAPECITABINE
     Indication: Cholangiocarcinoma
     Dosage: FREQUENCY : AS DIRECTED;?TAKE 4?TABLETS BY MOUTH 2 TIMES A DAY ON DAYS 1 TO 14 OF A 21 DAY CYCLE
     Route: 048
     Dates: start: 202403

REACTIONS (2)
  - Thrombosis [None]
  - Disease complication [None]
